FAERS Safety Report 7586681-2 (Version None)
Quarter: 2011Q3

REPORT INFORMATION
  Report Type: 
  Country: None (occurrence: None)
  Receive Date: 20110701
  Receipt Date: 20110621
  Transmission Date: 20111222
  Serious: Yes (Other)
  Sender: FDA-Public Use
  Company Number: FR-BRISTOL-MYERS SQUIBB COMPANY-15848948

PATIENT
  Age: 55 Year
  Sex: Female

DRUGS (2)
  1. PREDNISONE [Suspect]
  2. ORENCIA [Suspect]
     Indication: RHEUMATOID ARTHRITIS
     Dosage: LAST INF:10JUN2011
     Dates: start: 20100422

REACTIONS (1)
  - EPILEPSY [None]
